FAERS Safety Report 5931593-0 (Version None)
Quarter: 2008Q4

REPORT INFORMATION
  Report Type: 
  Country: None (occurrence: None)
  Receive Date: 20081027
  Receipt Date: 20081015
  Transmission Date: 20090506
  Serious: Yes (Death, Other)
  Sender: FDA-Public Use
  Company Number: JP-ELI_LILLY_AND_COMPANY-JP200810004021

PATIENT
  Age: 77 Year
  Sex: Male

DRUGS (1)
  1. GEMZAR [Suspect]
     Indication: PANCREATIC CARCINOMA
     Dosage: UNK, OTHER
     Route: 042
     Dates: start: 20030805, end: 20061101

REACTIONS (10)
  - ASCITES [None]
  - CHOLANGITIS [None]
  - DISSEMINATED INTRAVASCULAR COAGULATION [None]
  - HEPATIC ATROPHY [None]
  - MALAISE [None]
  - NODULAR REGENERATIVE HYPERPLASIA [None]
  - OSTEITIS [None]
  - PORTAL VEIN OCCLUSION [None]
  - RENAL FAILURE ACUTE [None]
  - TUMOUR INVASION [None]
